FAERS Safety Report 7774825-9 (Version None)
Quarter: 2011Q3

REPORT INFORMATION
  Report Type: 
  Country: None (occurrence: None)
  Receive Date: 20110923
  Receipt Date: 20110912
  Transmission Date: 20111222
  Serious: Yes (Hospitalization, Other)
  Sender: FDA-Public Use
  Company Number: US-AMGEN-USASP2011040447

PATIENT
  Age: 44 Year
  Sex: Female

DRUGS (6)
  1. ENBREL [Suspect]
     Indication: OSTEOARTHRITIS
  2. ANTIHYPERTENSIVES [Concomitant]
     Dosage: UNK
     Dates: start: 20110701, end: 20110701
  3. ENBREL [Suspect]
     Indication: RHEUMATOID ARTHRITIS
  4. ENBREL [Suspect]
     Indication: PSORIATIC ARTHROPATHY
     Dosage: 50 MG, QWK
     Dates: start: 20110601, end: 20110826
  5. ENBREL [Suspect]
     Indication: PSORIASIS
  6. ENBREL [Suspect]
     Indication: FIBROMYALGIA

REACTIONS (19)
  - JOINT SWELLING [None]
  - HYPERHIDROSIS [None]
  - RASH ERYTHEMATOUS [None]
  - VISION BLURRED [None]
  - OEDEMA PERIPHERAL [None]
  - FATIGUE [None]
  - PARAESTHESIA [None]
  - HYPERMETROPIA [None]
  - APHAGIA [None]
  - PANCREATITIS ACUTE [None]
  - BLOOD POTASSIUM DECREASED [None]
  - PAIN [None]
  - CHILLS [None]
  - ARTHRALGIA [None]
  - PAIN IN EXTREMITY [None]
  - WALKING AID USER [None]
  - STOMATITIS [None]
  - IMPAIRED HEALING [None]
  - DIARRHOEA [None]
